FAERS Safety Report 15250060 (Version 4)
Quarter: 2018Q3

REPORT INFORMATION
  Report Type: Report from Study
  Country: US (occurrence: US)
  Receive Date: 20180807
  Receipt Date: 20180903
  Transmission Date: 20181010
  Serious: Yes (Hospitalization, Other)
  Sender: FDA-Public Use
  Company Number: US-TAKEDA-2018TUS024037

PATIENT
  Sex: Male

DRUGS (3)
  1. PONATINIB [Suspect]
     Active Substance: PONATINIB
     Indication: CHRONIC MYELOID LEUKAEMIA
     Dosage: 45 MG, QD
     Route: 048
  2. IMBRUVICA [Concomitant]
     Active Substance: IBRUTINIB
     Dosage: UNK
     Route: 065
  3. PONATINIB [Suspect]
     Active Substance: PONATINIB
     Dosage: 15 MG, QD
     Route: 048

REACTIONS (10)
  - Bone lesion [Unknown]
  - Transaminases increased [Unknown]
  - Febrile neutropenia [Unknown]
  - Blood creatinine abnormal [Unknown]
  - Blood alkaline phosphatase abnormal [Unknown]
  - Pain in extremity [Unknown]
  - Spinal cord compression [Unknown]
  - Pancytopenia [Unknown]
  - Diarrhoea [Unknown]
  - Gamma-glutamyltransferase abnormal [Unknown]
